FAERS Safety Report 8559644 (Version 3)
Quarter: 2012Q4

REPORT INFORMATION
  Report Type: 
  Country: US (occurrence: US)
  Receive Date: 20120507
  Receipt Date: 20121214
  Transmission Date: 20130627
  Serious: Yes (Other)
  Sender: FDA-Public Use
  Company Number: US-009507513-2012SP022128

PATIENT
  Sex: Female

DRUGS (8)
  1. PEGINTRON [Suspect]
     Indication: HEPATITIS C
     Dosage: 120 mg, qw
     Route: 058
     Dates: start: 20120116, end: 20121210
  2. PEGINTRON [Suspect]
     Indication: HEPATIC CIRRHOSIS
  3. RIBAVIRIN [Suspect]
     Indication: HEPATITIS C
     Dosage: 600 mg, qd
     Route: 048
     Dates: start: 20120116, end: 20121211
  4. VICTRELIS [Suspect]
     Indication: HEPATITIS C
     Dosage: 800 mg, tid
     Route: 048
     Dates: start: 20120213, end: 20121211
  5. VICTRELIS [Suspect]
     Indication: HEPATIC CIRRHOSIS
  6. LASIX (FUROSEMIDE SODIUM) [Concomitant]
     Dosage: 20 mg, qd
     Route: 048
  7. LEVOTHYROXINE SODIUM [Concomitant]
     Dosage: 0.075 microgram qd
     Route: 048
  8. PROCRIT [Concomitant]
     Dosage: 40000 units qw
     Route: 058

REACTIONS (3)
  - Thyroid disorder [Unknown]
  - Anaemia [Unknown]
  - Haemoglobin abnormal [Unknown]
